FAERS Safety Report 10924110 (Version 1)
Quarter: 2015Q1

REPORT INFORMATION
  Report Type: Spontaneous
  Country: US (occurrence: None)
  Receive Date: 20150316
  Receipt Date: 20150316
  Transmission Date: 20150721
  Serious: Yes (Other)
  Sender: FDA-Public Use
  Company Number: None

PATIENT
  Age: 27 Year
  Sex: Male
  Weight: 74.5 kg

DRUGS (1)
  1. TRAMADOL [Suspect]
     Active Substance: TRAMADOL
     Indication: DRUG THERAPY
     Route: 048
     Dates: start: 20140924, end: 20141002

REACTIONS (1)
  - Seizure [None]

NARRATIVE: CASE EVENT DATE: 20141120
